FAERS Safety Report 5430467-1 (Version None)
Quarter: 2007Q3

REPORT INFORMATION
  Report Type: 
  Country: None (occurrence: None)
  Receive Date: 20070828
  Receipt Date: 20070815
  Transmission Date: 20080115
  Serious: Yes (Hospitalization, Other)
  Sender: FDA-Public Use
  Company Number: 2007BI015480

PATIENT
  Age: 57 Year
  Sex: Male
  Weight: 79.3795 kg

DRUGS (17)
  1. AVONEX [Suspect]
     Indication: MULTIPLE SCLEROSIS
     Dosage: 30 UG;QW; IM
     Route: 030
     Dates: start: 20000101
  2. AVONEX [Suspect]
     Indication: MULTIPLE SCLEROSIS
     Dosage: 30 UG;QW; IM
     Route: 030
  3. AVONEX [Suspect]
     Indication: MULTIPLE SCLEROSIS
     Dosage: 30 UG;QW; IM
     Route: 030
     Dates: end: 20070701
  4. LIPITOR [Concomitant]
  5. ALLOPURINOL [Concomitant]
  6. TERAZOSIN HCL [Concomitant]
  7. PROPECIA [Concomitant]
  8. SEROQUEL [Concomitant]
  9. MAGNESIUM SULFATE [Concomitant]
  10. LISINOPRIL [Concomitant]
  11. LASIX [Concomitant]
  12. DIGOXIN [Concomitant]
  13. COREG [Concomitant]
  14. PROTONIX [Concomitant]
  15. PLAVIX [Concomitant]
  16. ECOTRIN [Concomitant]
  17. COUMADIN [Concomitant]

REACTIONS (9)
  - AGITATION [None]
  - CARDIOGENIC SHOCK [None]
  - CARDIOTOXICITY [None]
  - DISORIENTATION [None]
  - HYPOAESTHESIA [None]
  - HYPOXIA [None]
  - MUSCLE SPASTICITY [None]
  - MYOCARDIAL INFARCTION [None]
  - VISION BLURRED [None]
